FAERS Safety Report 19947551 (Version 3)
Quarter: 2024Q4

REPORT INFORMATION
  Report Type: Report from Study
  Country: US (occurrence: US)
  Receive Date: 20211012
  Receipt Date: 20241002
  Transmission Date: 20250115
  Serious: Yes (Other)
  Sender: TAKEDA
  Company Number: US-TAKEDA-2021TUS003214

PATIENT
  Age: 42 Year
  Sex: Male

DRUGS (3)
  1. VELAGLUCERASE ALFA [Suspect]
     Active Substance: VELAGLUCERASE ALFA
     Indication: Gaucher^s disease
     Dosage: 8000 INTERNATIONAL UNIT, Q4WEEKS
     Route: 042
     Dates: start: 20200827
  2. VELAGLUCERASE ALFA [Suspect]
     Active Substance: VELAGLUCERASE ALFA
     Dosage: 8000 INTERNATIONAL UNIT, Q4WEEKS
     Route: 042
     Dates: start: 202008
  3. VELAGLUCERASE ALFA [Suspect]
     Active Substance: VELAGLUCERASE ALFA
     Dosage: 10800 INTERNATIONAL UNIT, Q4WEEKS
     Route: 042

REACTIONS (3)
  - Hand fracture [Unknown]
  - Rib fracture [Unknown]
  - Product dose omission issue [Unknown]

NARRATIVE: CASE EVENT DATE: 20240912
